FAERS Safety Report 6610091-5 (Version None)
Quarter: 2010Q1

REPORT INFORMATION
  Report Type: 
  Country: None (occurrence: None)
  Receive Date: 20100219
  Receipt Date: 20100208
  Transmission Date: 20100710
  Serious: Yes (Hospitalization)
  Sender: FDA-Public Use
  Company Number: 100202-0000140

PATIENT
  Age: 5 Year
  Sex: Female
  Weight: 15 kg

DRUGS (3)
  1. COSMEGEN [Suspect]
     Indication: NEPHROBLASTOMA
     Dosage: 0.5 MG; IV
     Route: 042
     Dates: start: 20090925, end: 20091026
  2. VINCRISTINE [Suspect]
     Indication: NEPHROBLASTOMA
     Dosage: IV
     Route: 042
     Dates: start: 20090925, end: 20091026
  3. DOXORUBICIN HCL [Suspect]
     Indication: NEPHROBLASTOMA
     Dosage: IV
     Route: 042
     Dates: start: 20090925, end: 20091026

REACTIONS (3)
  - DYSPHAGIA [None]
  - DYSPHONIA [None]
  - VOCAL CORD PARESIS [None]
